APPROVED DRUG PRODUCT: TRANDOLAPRIL
Active Ingredient: TRANDOLAPRIL
Strength: 1MG
Dosage Form/Route: TABLET;ORAL
Application: A077805 | Product #001
Applicant: WATSON LABORATORIES INC
Approved: Jun 12, 2007 | RLD: No | RS: No | Type: DISCN